FAERS Safety Report 8115774-6 (Version None)
Quarter: 2012Q1

REPORT INFORMATION
  Report Type: 
  Country: None (occurrence: None)
  Receive Date: 20120201
  Receipt Date: 20120119
  Transmission Date: 20120608
  Serious: Yes (Hospitalization)
  Sender: FDA-Public Use
  Company Number: DSA_48971_2012

PATIENT
  Age: 63 Year
  Sex: Female

DRUGS (12)
  1. ENALAPRIL MALEATE [Suspect]
     Indication: PRODUCT USED FOR UNKNOWN INDICATION
     Dosage: (10 MG QD ORAL)
     Route: 048
  2. MIRCERA [Concomitant]
  3. HUMAN INSULATARD [Concomitant]
  4. COPEGUS [Suspect]
     Indication: HEPATITIS C VIRUS TEST POSITIVE
     Dosage: (ORAL)
     Route: 048
     Dates: end: 20110801
  5. NOVORAPID [Concomitant]
  6. IRBESARTAN [Concomitant]
  7. ACETAMINOPHEN [Concomitant]
  8. PEGASYS [Suspect]
     Indication: HEPATITIS C VIRUS TEST POSITIVE
     Dosage: (135 UG, FREQUENCY UNKNOWN SUBCUTANEOS)
     Route: 058
     Dates: end: 20110801
  9. FUROSEMIDE [Concomitant]
  10. LEVOTHYROXINE SODIUM [Concomitant]
  11. ACETAMINOPHEN AND TRAMADOL HCL [Concomitant]
  12. GAVISCON /00237601/ [Concomitant]

REACTIONS (5)
  - THROMBOCYTOPENIA [None]
  - ANAEMIA [None]
  - LEUKOPENIA [None]
  - LYMPHOPENIA [None]
  - ASTHENIA [None]
